FAERS Safety Report 9231245 (Version 3)
Quarter: 2013Q2

REPORT INFORMATION
  Report Type: Report from Study
  Country: US (occurrence: US)
  Receive Date: 20130415
  Receipt Date: 20130524
  Transmission Date: 20140414
  Serious: Yes (Death, Other)
  Sender: FDA-Public Use
  Company Number: US-ROCHE-1197483

PATIENT
  Sex: Female

DRUGS (1)
  1. ACTEMRA [Suspect]
     Indication: PRODUCT USED FOR UNKNOWN INDICATION
     Route: 065
     Dates: end: 20121024

REACTIONS (8)
  - Multi-organ failure [Fatal]
  - Pneumonia pseudomonas aeruginosa [Fatal]
  - Urinary tract infection bacterial [Fatal]
  - Bacteraemia [Fatal]
  - Septic shock [Fatal]
  - Acute pulmonary histoplasmosis [Fatal]
  - Gastrointestinal perforation [Unknown]
  - Histoplasmosis [Unknown]
